FAERS Safety Report 8301394-7 (Version None)
Quarter: 2012Q2

REPORT INFORMATION
  Report Type: 
  Country: None (occurrence: None)
  Receive Date: 20120420
  Receipt Date: 20120412
  Transmission Date: 20120825
  Serious: Yes (Other)
  Sender: FDA-Public Use
  Company Number: JP-VERTEX PHARMACEUTICALS INC.-AE-2012-005403

PATIENT
  Age: 65 Year
  Sex: Female

DRUGS (11)
  1. TELAVIC (TELAPREVIR) [Suspect]
     Route: 048
     Dates: start: 20120131
  2. RIBAVIRIN [Concomitant]
     Indication: HEPATITIS C
     Route: 048
     Dates: start: 20120118, end: 20120130
  3. RIBAVIRIN [Concomitant]
     Route: 048
     Dates: start: 20120131, end: 20120131
  4. RIBAVIRIN [Concomitant]
     Route: 048
     Dates: start: 20120201
  5. PEGINTERFERON [Concomitant]
     Route: 051
     Dates: start: 20120201
  6. TELAVIC (TELAPREVIR) [Suspect]
     Route: 048
     Dates: start: 20120128, end: 20120130
  7. TELAVIC (TELAPREVIR) [Suspect]
     Indication: HEPATITIS C
     Route: 048
     Dates: start: 20120118, end: 20120127
  8. PEGINTERFERON [Concomitant]
     Route: 051
     Dates: start: 20120215
  9. URSO 250 [Concomitant]
     Route: 048
  10. EPINASTINE HYDROCHLORIDE [Concomitant]
     Route: 048
     Dates: start: 20120118
  11. PEGINTERFERON [Concomitant]
     Indication: HEPATITIS C
     Route: 051
     Dates: start: 20120118, end: 20120131

REACTIONS (1)
  - HEPATIC FUNCTION ABNORMAL [None]
